FAERS Safety Report 4872797-8 (Version None)
Quarter: 2005Q4

REPORT INFORMATION
  Report Type: 
  Country: None (occurrence: None)
  Receive Date: 20051227
  Receipt Date: 20051214
  Transmission Date: 20060501
  Serious: Yes (Life-Threatening)
  Sender: FDA-Public Use
  Company Number: 200509665

PATIENT
  Age: 40 Year
  Sex: Female
  Weight: 54 kg

DRUGS (3)
  1. SANDOGLOBULIN [Suspect]
     Indication: AUTOIMMUNE THROMBOCYTOPENIA
     Dosage: 1 G/KG B.W. DAILY
     Dates: start: 19910624, end: 19910625
  2. SANDOGLOBULIN [Suspect]
  3. SANDOGLOBULIN [Suspect]

REACTIONS (2)
  - HIV ANTIBODY POSITIVE [None]
  - SEROCONVERSION TEST POSITIVE [None]
